FAERS Safety Report 8342763-9 (Version None)
Quarter: 2012Q2

REPORT INFORMATION
  Report Type: 
  Country: None (occurrence: None)
  Receive Date: 20120508
  Receipt Date: 20120507
  Transmission Date: 20120825
  Serious: No
  Sender: FDA-Public Use
  Company Number: US-BAYER-2012-044415

PATIENT
  Age: 51 Year
  Sex: Male

DRUGS (6)
  1. ESCITALOPRAM [Concomitant]
     Dosage: 20 MG, UNK
  2. METHOCARBAMOL [Concomitant]
  3. HYDROCODONE BITARTRATE + ACETAMINOPHEN [Concomitant]
     Dosage: 10/325 MG
  4. NEXAVAR [Suspect]
     Indication: HEPATIC NEOPLASM MALIGNANT
     Dosage: 200 MG, BID (REPORTEDLY: 1HR AC OR 2HR PC)
     Route: 048
     Dates: start: 20120214
  5. ALPRAZOLAM [Concomitant]
     Dosage: 0.5 MG, UNK
  6. ZOLPIDEM [Concomitant]
     Dosage: 10 MG, UNK

REACTIONS (7)
  - PRURITUS [None]
  - PALMAR-PLANTAR ERYTHRODYSAESTHESIA SYNDROME [None]
  - DIARRHOEA [None]
  - ERYTHEMA [None]
  - DYSPNOEA [None]
  - FATIGUE [None]
  - ASTHENIA [None]
